FAERS Safety Report 10543668 (Version 1)
Quarter: 2014Q4

REPORT INFORMATION
  Report Type: Spontaneous
  Country: US (occurrence: US)
  Receive Date: 20141027
  Receipt Date: 20141027
  Transmission Date: 20150529
  Serious: Yes (Other)
  Sender: FDA-Public Use
  Company Number: US-SA-2014SA142388

PATIENT
  Age: 53 Year
  Sex: Male

DRUGS (2)
  1. NOVOLOG [Concomitant]
     Active Substance: INSULIN ASPART
     Dosage: FREQUENCY: WITH MEALS DOSE:10 UNIT(S)
  2. LANTUS [Suspect]
     Active Substance: INSULIN GLARGINE
     Indication: DIABETES MELLITUS
     Dosage: DOSE: 32 U IN AM , 34 U IN PM
     Route: 065

REACTIONS (6)
  - Blindness [Unknown]
  - Headache [Unknown]
  - Cerebrovascular accident [Not Recovered/Not Resolved]
  - Drug administration error [Unknown]
  - Memory impairment [Unknown]
  - Dysphagia [Unknown]
